FAERS Safety Report 17352137 (Version 1)
Quarter: 2020Q1

REPORT INFORMATION
  Report Type: Spontaneous
  Country: CA (occurrence: CA)
  Receive Date: 20200130
  Receipt Date: 20200130
  Transmission Date: 20200409
  Serious: Yes (Hospitalization, Other)
  Sender: FDA-Public Use
  Company Number: CA-ALSI-202000039

PATIENT
  Age: 66 Year
  Sex: Female

DRUGS (12)
  1. BUPRENORPHINE. [Concomitant]
     Active Substance: BUPRENORPHINE
  2. FUROSEMIDE. [Concomitant]
     Active Substance: FUROSEMIDE
  3. TRACLEER [Concomitant]
     Active Substance: BOSENTAN
  4. TADALAFIL. [Suspect]
     Active Substance: TADALAFIL
     Route: 065
  5. SENNOSIDES A+B (SENNOSIDE A+B) [Concomitant]
  6. PEG 3350 (POLYETHYLENE GLYCOL 3350 NF) [Concomitant]
  7. SPIRIVA [Concomitant]
     Active Substance: TIOTROPIUM BROMIDE MONOHYDRATE
  8. OXYGEN. [Suspect]
     Active Substance: OXYGEN
     Indication: PRODUCT USED FOR UNKNOWN INDICATION
  9. LEVOTHYROXINE. [Concomitant]
     Active Substance: LEVOTHYROXINE
  10. SPIRONOLACTONE. [Concomitant]
     Active Substance: SPIRONOLACTONE
  11. ZENHALE (MOMETASONE FUROATE; FORMOTEROL FUMARATE) [Concomitant]
  12. ALEVE (NAPROXEN) [Concomitant]

REACTIONS (2)
  - Cardiac failure congestive [Not Recovered/Not Resolved]
  - Epistaxis [Not Recovered/Not Resolved]
